FAERS Safety Report 24430443 (Version 1)
Quarter: 2024Q4

REPORT INFORMATION
  Report Type: Spontaneous
  Country: CZ (occurrence: CZ)
  Receive Date: 20241013
  Receipt Date: 20241013
  Transmission Date: 20250114
  Serious: Yes (Hospitalization, Other)
  Sender: DR REDDYS
  Company Number: None

PATIENT
  Age: 39 Year
  Sex: Male

DRUGS (6)
  1. PREGABALIN [Suspect]
     Active Substance: PREGABALIN
     Indication: Generalised anxiety disorder
     Dosage: IN TWO DIVIDED DOSES, ABOUT 20 MONTHS
     Route: 065
     Dates: start: 202301
  2. PREGABALIN [Suspect]
     Active Substance: PREGABALIN
     Indication: Personality disorder
     Dosage: REDUCED TO 600 MG WITHIN 14 DAYS
     Route: 065
  3. PREGABALIN [Suspect]
     Active Substance: PREGABALIN
  4. PREGABALIN [Suspect]
     Active Substance: PREGABALIN
     Dosage: REDUCE THE SUPRAMAXIMAL DOSES - REDUCTION
     Route: 065
  5. PREGABALIN [Suspect]
     Active Substance: PREGABALIN
     Dosage: CPS 2-2-1 SCHEDULE
     Route: 065
  6. PREGABALIN [Suspect]
     Active Substance: PREGABALIN
     Dosage: ONE MORNING DOSE, ALSO BY SNIFFING, ARBITRARILY INCREASED THE DOSE
     Route: 050
     Dates: start: 202301

REACTIONS (10)
  - Tension [Unknown]
  - Conjunctival hyperaemia [Unknown]
  - Drug dependence [Unknown]
  - Hyperhidrosis [Unknown]
  - Anxiety [Unknown]
  - Withdrawal syndrome [Unknown]
  - Aggression [Unknown]
  - Insomnia [Unknown]
  - Drug dependence [Unknown]
  - Psychiatric decompensation [Unknown]
